FAERS Safety Report 14080352 (Version 1)
Quarter: 2017Q4

REPORT INFORMATION
  Report Type: Spontaneous
  Country: US (occurrence: US)
  Receive Date: 20171012
  Receipt Date: 20171012
  Transmission Date: 20180321
  Serious: No
  Sender: FDA-Public Use
  Company Number: US-MYLANLABS-2017M1033938

PATIENT
  Sex: Female

DRUGS (2)
  1. FENTANYL. [Suspect]
     Active Substance: FENTANYL
     Indication: PAIN
     Dosage: 250 ?G/HR, Q2D
     Route: 062
  2. FENTANYL. [Suspect]
     Active Substance: FENTANYL
     Dosage: 200 ?G/HR, Q2D
     Route: 062

REACTIONS (3)
  - Product adhesion issue [Unknown]
  - Withdrawal syndrome [Unknown]
  - Therapeutic response unexpected [Unknown]
